FAERS Safety Report 4415011-X (Version None)
Quarter: 2004Q3

REPORT INFORMATION
  Report Type: 
  Country: None (occurrence: None)
  Receive Date: 20040804
  Receipt Date: 20040708
  Transmission Date: 20050211
  Serious: Yes (Hospitalization)
  Sender: FDA-Public Use
  Company Number: SE-ROCHE-373776

PATIENT
  Age: 41 Year
  Sex: Female

DRUGS (42)
  1. MYCOPHENOLATE MOFETIL [Suspect]
     Route: 065
     Dates: start: 20031009, end: 20031009
  2. MYCOPHENOLATE MOFETIL [Suspect]
     Route: 065
  3. CYCLOSPORINE [Suspect]
     Route: 065
     Dates: start: 20031007, end: 20031007
  4. CYCLOSPORINE [Suspect]
     Route: 065
     Dates: start: 20031008, end: 20031012
  5. CYCLOSPORINE [Suspect]
     Route: 065
     Dates: start: 20031013, end: 20031016
  6. CYCLOSPORINE [Suspect]
     Route: 065
     Dates: start: 20031017, end: 20031017
  7. CYCLOSPORINE [Suspect]
     Route: 065
     Dates: start: 20031018, end: 20031104
  8. CYCLOSPORINE [Suspect]
     Route: 065
     Dates: start: 20031105, end: 20031116
  9. CYCLOSPORINE [Suspect]
     Route: 065
     Dates: start: 20031117, end: 20031229
  10. CYCLOSPORINE [Suspect]
     Route: 065
     Dates: start: 20031230, end: 20040118
  11. CYCLOSPORINE [Suspect]
     Route: 065
     Dates: start: 20040119, end: 20040202
  12. CYCLOSPORINE [Suspect]
     Route: 065
     Dates: start: 20040203, end: 20040405
  13. CYCLOSPORINE [Suspect]
     Route: 065
     Dates: start: 20040406, end: 20040503
  14. CYCLOSPORINE [Suspect]
     Dosage: 175 MG + 150 MG
     Route: 065
     Dates: start: 20040504, end: 20040505
  15. CYCLOSPORINE [Suspect]
     Route: 065
     Dates: start: 20040506, end: 20040520
  16. CYCLOSPORINE [Suspect]
     Dosage: 150 MG + 125 MG
     Route: 065
     Dates: start: 20040521, end: 20040606
  17. CYCLOSPORINE [Suspect]
     Route: 065
     Dates: start: 20040607
  18. METHYLPREDNISOLONE [Suspect]
     Route: 065
     Dates: start: 20031009, end: 20031009
  19. PREDNISOLONE [Suspect]
     Route: 065
     Dates: start: 20031009, end: 20031009
  20. PREDNISOLONE [Suspect]
     Route: 065
     Dates: start: 20031010, end: 20031010
  21. PREDNISOLONE [Suspect]
     Route: 065
     Dates: start: 20031011, end: 20031011
  22. PREDNISOLONE [Suspect]
     Route: 065
     Dates: start: 20031012, end: 20031012
  23. PREDNISOLONE [Suspect]
     Route: 065
     Dates: start: 20031013, end: 20031013
  24. PREDNISOLONE [Suspect]
     Route: 065
     Dates: start: 20031014, end: 20031014
  25. PREDNISOLONE [Suspect]
     Route: 065
     Dates: start: 20031015, end: 20031015
  26. PREDNISOLONE [Suspect]
     Route: 065
     Dates: start: 20031016, end: 20031016
  27. PREDNISOLONE [Suspect]
     Route: 065
     Dates: start: 20031017, end: 20031106
  28. PREDNISOLONE [Suspect]
     Route: 065
     Dates: start: 20031107, end: 20031210
  29. PREDNISOLONE [Suspect]
     Route: 065
     Dates: start: 20031211, end: 20040108
  30. PREDNISOLONE [Suspect]
     Route: 065
     Dates: start: 20040109, end: 20040513
  31. PREDNISOLONE [Suspect]
     Route: 065
     Dates: start: 20040514, end: 20040517
  32. PREDNISOLONE [Suspect]
     Route: 065
     Dates: start: 20040518, end: 20040518
  33. PREDNISOLONE [Suspect]
     Route: 065
     Dates: start: 20040519, end: 20040519
  34. PREDNISOLONE [Suspect]
     Route: 065
     Dates: start: 20040520
  35. ENALAPRIL MALEATE [Concomitant]
  36. CEFUROXIM [Concomitant]
     Indication: PROPHYLAXIS
     Dates: start: 20031009, end: 20031018
  37. SULFAMETHOXAZOLE AND TRIMETHOPRIM [Concomitant]
     Dates: start: 20031012
  38. MECILLINAM [Concomitant]
     Dates: start: 20031017, end: 20031027
  39. AMOXICILLIN [Concomitant]
     Dates: start: 20031120, end: 20040128
  40. NORFLOXACIN [Concomitant]
     Dates: start: 20031127, end: 20031218
  41. CEFTIBUTEN [Concomitant]
     Dates: start: 20040704
  42. CEFOTAXIM [Concomitant]
     Indication: HYPERTHYROIDISM
     Dosage: STOPPED 17 MAY 2004 AND RESTARTED 1 JULY 2004.
     Dates: start: 20040412, end: 20040704

REACTIONS (8)
  - ASTHENIA [None]
  - BLOOD CALCIUM DECREASED [None]
  - FATIGUE [None]
  - HYPERPARATHYROIDISM [None]
  - HYPERTHYROIDISM [None]
  - LYMPHOCELE [None]
  - PYREXIA [None]
  - WEIGHT DECREASED [None]
